FAERS Safety Report 9771344 (Version 3)
Quarter: 2014Q1

REPORT INFORMATION
  Report Type: Spontaneous
  Country: US (occurrence: US)
  Receive Date: 20131218
  Receipt Date: 20140123
  Transmission Date: 20141002
  Serious: Yes (Other)
  Sender: FDA-Public Use
  Company Number: US-AMGEN-USASP2013088644

PATIENT
  Age: 70 Year
  Sex: Female

DRUGS (14)
  1. ENBREL [Suspect]
     Indication: RHEUMATOID ARTHRITIS
     Dosage: UNK
     Route: 065
  2. XELJANZ [Suspect]
     Indication: RHEUMATOID ARTHRITIS
     Dosage: UNK UNK, 5 BID
     Route: 048
     Dates: start: 201304, end: 201311
  3. ORTHOVISC [Suspect]
     Indication: PRODUCT USED FOR UNKNOWN INDICATION
     Dosage: UNK
     Route: 065
  4. ACTONEL [Concomitant]
     Indication: OSTEOPOROSIS
     Dosage: 150 MG, QMO
     Dates: start: 20110823
  5. ALEVE [Concomitant]
     Indication: PAIN
     Dosage: 220 MG, 2 TABLETS DAILY PRN
     Route: 048
     Dates: start: 20130710
  6. BIOTIN [Concomitant]
     Dosage: 5 MG, UNK
     Route: 048
     Dates: start: 20081110
  7. DIAZEPAM [Concomitant]
     Dosage: 5 MG, AT BED TIME AS NECESSARY
     Route: 048
     Dates: start: 20121203
  8. HYDROCHLOROTHIAZIDE [Concomitant]
     Dosage: 12.5 MG, QD
     Route: 048
     Dates: start: 20080509
  9. METOPROLOL SUCCINATE [Concomitant]
     Indication: BLOOD PRESSURE
     Dosage: 25 MG, QD
     Route: 048
     Dates: start: 20131125
  10. PREDNISONE [Concomitant]
     Dosage: 5 MG, QD
     Route: 048
  11. TYLENOL ARTHRITIS PAIN [Concomitant]
     Dosage: 2 TABLETS, AS NECESSARY
     Dates: start: 20130607
  12. KENALOG                            /00031902/ [Concomitant]
     Dosage: 40 MG, UNK
  13. MARCAINE                           /00330101/ [Concomitant]
     Dosage: 1 CC
  14. BUTRANS                            /00444001/ [Concomitant]
     Dosage: 5 MUG PATCH, Q 7 DAYS

REACTIONS (31)
  - Bursitis [Unknown]
  - Osteoarthritis [Unknown]
  - Uterine cancer [Not Recovered/Not Resolved]
  - Metastases to lung [Not Recovered/Not Resolved]
  - Acute stress disorder [Unknown]
  - Meniscus injury [Unknown]
  - Myofascial pain syndrome [Unknown]
  - Bundle branch block left [Unknown]
  - Palpitations [Unknown]
  - Ventricular extrasystoles [Unknown]
  - Tachycardia [Unknown]
  - Pericardial disease [Unknown]
  - Thrombophlebitis [Unknown]
  - Rhinitis allergic [Unknown]
  - Drug effect incomplete [Unknown]
  - Kyphoscoliosis [Unknown]
  - Arthralgia [Unknown]
  - Blood test abnormal [Unknown]
  - Alopecia [Unknown]
  - Back pain [Unknown]
  - Carpal tunnel syndrome [Unknown]
  - Spinal osteoarthritis [Unknown]
  - Hypertension [Unknown]
  - Leukocytosis [Unknown]
  - Osteoporosis [Unknown]
  - Rotator cuff syndrome [Unknown]
  - Synovial cyst [Unknown]
  - Trigger finger [Unknown]
  - Joint laxity [Unknown]
  - Pain [Unknown]
  - Anaemia [Unknown]
